FAERS Safety Report 24018560 (Version 1)
Quarter: 2024Q2

REPORT INFORMATION
  Report Type: Spontaneous
  Country: DE (occurrence: DE)
  Receive Date: 20240627
  Receipt Date: 20240627
  Transmission Date: 20240716
  Serious: Yes (Other)
  Sender: FDA-Public Use
  Company Number: None

PATIENT
  Age: 40 Year
  Sex: Female
  Weight: 62 kg

DRUGS (1)
  1. LEVETIRACETAM [Suspect]
     Active Substance: LEVETIRACETAM
     Indication: Epilepsy
     Dosage: 750-0-750 (NOT SURE)
     Route: 048
     Dates: start: 20240213, end: 202404

REACTIONS (11)
  - Craniocerebral injury [Unknown]
  - Memory impairment [Recovering/Resolving]
  - Eustachian tube dysfunction [Not Recovered/Not Resolved]
  - Drug dose titration not performed [Unknown]
  - Increased need for sleep [Recovered/Resolved]
  - Disturbance in attention [Recovering/Resolving]
  - Rhinitis [Not Recovered/Not Resolved]
  - Anosmia [Not Recovered/Not Resolved]
  - Fall [Unknown]
  - Dizziness [Recovering/Resolving]
  - Fatigue [Recovered/Resolved]

NARRATIVE: CASE EVENT DATE: 20240213
